FAERS Safety Report 4812997-6 (Version None)
Quarter: 2005Q4

REPORT INFORMATION
  Report Type: 
  Country: None (occurrence: None)
  Receive Date: 20051028
  Receipt Date: 20050601
  Transmission Date: 20060501
  Serious: No
  Sender: FDA-Public Use
  Company Number: US-GLAXOSMITHKLINE-A0560770A

PATIENT
  Age: 82 Year
  Sex: Female

DRUGS (9)
  1. ADVAIR DISKUS 100/50 [Suspect]
     Dosage: 1PUFF TWICE PER DAY
     Route: 055
     Dates: start: 20050426
  2. ASPIRIN [Concomitant]
  3. MULTI-VITAMINS [Concomitant]
  4. VITAMIN D + CALCIUM [Concomitant]
  5. ZOCOR [Concomitant]
  6. EXTRA STRENGTH TYLENOL [Concomitant]
  7. AMITRIPTYLINE HCL [Concomitant]
  8. PREVACID [Concomitant]
  9. TYLENOL (CAPLET) [Concomitant]

REACTIONS (3)
  - DYSPHONIA [None]
  - MUSCLE TIGHTNESS [None]
  - PHARMACEUTICAL PRODUCT COMPLAINT [None]
